FAERS Safety Report 13470652 (Version 1)
Quarter: 2017Q2

REPORT INFORMATION
  Report Type: Report from Study
  Country: IT (occurrence: IT)
  Receive Date: 20170424
  Receipt Date: 20170424
  Transmission Date: 20170830
  Serious: Yes (Other)
  Sender: FDA-Public Use
  Company Number: IT-ROCHE-1922360

PATIENT
  Age: 78 Year
  Sex: Male
  Weight: 111.7 kg

DRUGS (6)
  1. VEMURAFENIB [Suspect]
     Active Substance: VEMURAFENIB
     Indication: MALIGNANT MELANOMA
     Dosage: 960 MG B.I.D. FOR EACH COURSE OF TREATMENT LASTING 28 DAYS.
     Route: 048
     Dates: start: 20170314, end: 20170404
  2. COBIMETINIB [Suspect]
     Active Substance: COBIMETINIB
     Indication: MALIGNANT MELANOMA
     Route: 048
     Dates: start: 20170314, end: 20170404
  3. COBIMETINIB [Suspect]
     Active Substance: COBIMETINIB
     Route: 048
     Dates: start: 20170413
  4. VEMURAFENIB [Suspect]
     Active Substance: VEMURAFENIB
     Route: 048
     Dates: start: 20170413
  5. PEGINTERFERON ALFA-2B [Suspect]
     Active Substance: PEGINTERFERON ALFA-2B
     Route: 058
     Dates: start: 20170413
  6. PEGINTERFERON ALFA-2B [Suspect]
     Active Substance: PEGINTERFERON ALFA-2B
     Indication: MALIGNANT MELANOMA
     Dosage: 1 MCG/KG ONE TIME PER WEEK
     Route: 058
     Dates: start: 20170328

REACTIONS (1)
  - Hepatitis chronic persistent [Recovered/Resolved]

NARRATIVE: CASE EVENT DATE: 20170409
